FAERS Safety Report 6457750-5 (Version None)
Quarter: 2009Q4

REPORT INFORMATION
  Report Type: 
  Country: None (occurrence: None)
  Receive Date: 20091125
  Receipt Date: 20091120
  Transmission Date: 20100525
  Serious: Yes (Death, Hospitalization)
  Sender: FDA-Public Use
  Company Number: JP-CELGENEUS-087-20785-09111862

PATIENT
  Age: 68 Year
  Sex: Female

DRUGS (1)
  1. THALIDOMIDE [Suspect]
     Indication: MULTIPLE MYELOMA
     Route: 048

REACTIONS (3)
  - DEATH [None]
  - DIABETIC HYPERGLYCAEMIC COMA [None]
  - NO THERAPEUTIC RESPONSE [None]
